FAERS Safety Report 14028022 (Version 1)
Quarter: 2017Q3

REPORT INFORMATION
  Report Type: Spontaneous
  Country: US (occurrence: None)
  Receive Date: 20170929
  Receipt Date: 20170929
  Transmission Date: 20171128
  Serious: No
  Sender: FDA-Public Use
  Company Number: None

PATIENT
  Age: 89 Year
  Sex: Male
  Weight: 92.53 kg

DRUGS (1)
  1. SACUBITRIL/VALSARTAN [Suspect]
     Active Substance: SACUBITRIL\VALSARTAN
     Indication: CARDIAC FAILURE CONGESTIVE
     Dosage: DOSE AMOUNT - 24.5/25.5 MG
     Route: 048
     Dates: start: 20170602, end: 20170808

REACTIONS (1)
  - Hypotension [None]

NARRATIVE: CASE EVENT DATE: 20170808
